FAERS Safety Report 21989650 (Version 1)
Quarter: 2023Q1

REPORT INFORMATION
  Report Type: Other
  Country: None (occurrence: US)
  Receive Date: 20230214
  Receipt Date: 20230214
  Transmission Date: 20230418
  Serious: Yes (Hospitalization, Other)
  Sender: FDA-Public Use
  Company Number: US-Spectra Medical Devices, LLC-2137918

PATIENT
  Age: 49 Year
  Sex: Male

DRUGS (3)
  1. SODIUM CHLORIDE [Suspect]
     Active Substance: SODIUM CHLORIDE
     Indication: Hyponatraemia
     Route: 065
  2. DEXTROSE [Concomitant]
     Active Substance: DEXTROSE
     Route: 065
  3. SALINE [Suspect]
     Active Substance: SODIUM CHLORIDE
     Route: 065

REACTIONS (2)
  - Rapid correction of hyponatraemia [Recovered/Resolved]
  - Osmotic demyelination syndrome [Recovered/Resolved]
